FAERS Safety Report 6942905-3 (Version None)
Quarter: 2010Q3

REPORT INFORMATION
  Report Type: 
  Country: None (occurrence: None)
  Receive Date: 20100826
  Receipt Date: 20100813
  Transmission Date: 20110219
  Serious: Yes (Other)
  Sender: FDA-Public Use
  Company Number: DE-BAYER-201024319GPV

PATIENT
  Sex: Male
  Weight: 106 kg

DRUGS (1)
  1. NEXAVAR [Suspect]
     Indication: RENAL CELL CARCINOMA
     Route: 048
     Dates: start: 20100209

REACTIONS (2)
  - GASTRIC ULCER HAEMORRHAGE [None]
  - METASTASES TO SMALL INTESTINE [None]
